FAERS Safety Report 19866281 (Version 1)
Quarter: 2021Q3

REPORT INFORMATION
  Report Type: Spontaneous
  Country: US (occurrence: US)
  Receive Date: 20210921
  Receipt Date: 20210921
  Transmission Date: 20211014
  Serious: Yes (Other)
  Sender: FDA-Public Use
  Company Number: US-ALLERGAN-2131663US

PATIENT
  Sex: Female

DRUGS (1)
  1. REFRESH OPTIVE [Suspect]
     Active Substance: CARBOXYMETHYLCELLULOSE SODIUM\GLYCERIN
     Indication: PRODUCT USED FOR UNKNOWN INDICATION
     Dosage: UNK
     Route: 047
     Dates: start: 2017

REACTIONS (11)
  - Artificial heart implant [Unknown]
  - Pain in extremity [Not Recovered/Not Resolved]
  - Skin mass [Unknown]
  - Expired product administered [Unknown]
  - Arthralgia [Not Recovered/Not Resolved]
  - Erythema of eyelid [Not Recovered/Not Resolved]
  - Vision blurred [Unknown]
  - Limb operation [Recovered/Resolved with Sequelae]
  - Eye irritation [Not Recovered/Not Resolved]
  - Hip surgery [Recovered/Resolved with Sequelae]
  - Poor quality product administered [Unknown]
